FAERS Safety Report 18069937 (Version 1)
Quarter: 2020Q3

REPORT INFORMATION
  Report Type: Other
  Country: BE (occurrence: BE)
  Receive Date: 20200727
  Receipt Date: 20200727
  Transmission Date: 20201105
  Serious: Yes (Other)
  Sender: FDA-Public Use
  Company Number: BE-CELLTRION INC.-2020BE022401

PATIENT

DRUGS (6)
  1. RITUXIMAB (UNKNOWN) [Suspect]
     Active Substance: RITUXIMAB
     Dosage: 1400 MG, MONTHLY
     Route: 042
     Dates: start: 20200213
  2. RITUXIMAB (UNKNOWN) [Suspect]
     Active Substance: RITUXIMAB
     Indication: DIFFUSE LARGE B-CELL LYMPHOMA
     Dosage: 700 MG, MONTHLY; LAST ADMISSION: 26/MAY/2020, ONGOING
     Route: 042
     Dates: start: 20200213
  3. POLATUZUMAB VEDOTIN. [Suspect]
     Active Substance: POLATUZUMAB VEDOTIN
     Indication: DIFFUSE LARGE B-CELL LYMPHOMA
     Dosage: 136 MG, MONTHLY
     Route: 042
     Dates: start: 20200214
  4. POLATUZUMAB VEDOTIN. [Suspect]
     Active Substance: POLATUZUMAB VEDOTIN
     Dosage: 140 MG, MONTHLY; LAST ADMISSION: 26/MAY/2020, ONGOING
     Route: 042
     Dates: start: 20200214
  5. BENDAMUSTINE [Suspect]
     Active Substance: BENDAMUSTINE
     Indication: DIFFUSE LARGE B-CELL LYMPHOMA
     Dosage: 164 MG, MONTHLY; LAST ADMISSION: 26/MAY/2020, ONGOING
     Route: 042
     Dates: start: 20200213
  6. BENDAMUSTINE [Suspect]
     Active Substance: BENDAMUSTINE
     Dosage: 80 MG, MONTHLY
     Route: 042
     Dates: start: 20200213

REACTIONS (12)
  - Macular degeneration [Recovering/Resolving]
  - Muscle spasms [Not Recovered/Not Resolved]
  - Platelet count decreased [Not Recovered/Not Resolved]
  - Vomiting [Recovered/Resolved]
  - Neutrophil count decreased [Recovered/Resolved]
  - Anaemia [Not Recovered/Not Resolved]
  - Anaemia [Not Recovered/Not Resolved]
  - Nausea [Not Recovered/Not Resolved]
  - Diarrhoea [Recovered/Resolved]
  - Anaemia [Not Recovered/Not Resolved]
  - Overdose [Unknown]
  - Product use issue [Unknown]

NARRATIVE: CASE EVENT DATE: 20200215
